FAERS Safety Report 18214174 (Version 4)
Quarter: 2020Q4

REPORT INFORMATION
  Report Type: Report from Study
  Country: US (occurrence: US)
  Receive Date: 20200831
  Receipt Date: 20201015
  Transmission Date: 20210113
  Serious: Yes (Hospitalization, Other)
  Sender: FDA-Public Use
  Company Number: US-PFIZER INC-2020241733

PATIENT
  Age: 48 Year
  Sex: Female

DRUGS (3)
  1. IBRANCE [Suspect]
     Active Substance: PALBOCICLIB
     Dosage: 125 MG, CYCLIC (DAILY; FOR 21 DAYS OF 28 DAY CYCLE)
     Route: 048
     Dates: start: 20200618
  2. IBRANCE [Suspect]
     Active Substance: PALBOCICLIB
     Indication: BREAST CANCER STAGE IV
     Dosage: 125 MG, CYCLIC (FOR 21 DAYS OF 28 DAY)
     Route: 048
     Dates: start: 20200618, end: 20200806
  3. LETROZOLE. [Concomitant]
     Active Substance: LETROZOLE
     Dosage: UNK

REACTIONS (16)
  - Product dose omission issue [Unknown]
  - Somnolence [Unknown]
  - Nocturnal dyspnoea [Unknown]
  - Decreased appetite [Not Recovered/Not Resolved]
  - Agitation [Unknown]
  - Retching [Not Recovered/Not Resolved]
  - Diabetes mellitus [Unknown]
  - Nausea [Not Recovered/Not Resolved]
  - Alopecia [Unknown]
  - Cough [Unknown]
  - Renal impairment [Unknown]
  - Dizziness [Unknown]
  - Dysgeusia [Unknown]
  - Arthritis infective [Unknown]
  - Vomiting [Unknown]
  - Peripheral swelling [Unknown]

NARRATIVE: CASE EVENT DATE: 202006
